FAERS Safety Report 11981994 (Version 4)
Quarter: 2016Q1

REPORT INFORMATION
  Report Type: Spontaneous
  Country: AU (occurrence: AU)
  Receive Date: 20160201
  Receipt Date: 20160224
  Transmission Date: 20160526
  Serious: Yes (Life-Threatening, Other)
  Sender: FDA-Public Use
  Company Number: AU-009507513-1601AUS008715

PATIENT
  Age: 75 Year
  Sex: Female
  Weight: 75 kg

DRUGS (3)
  1. SUGAMMADEX SODIUM [Suspect]
     Active Substance: SUGAMMADEX SODIUM
     Indication: NEUROMUSCULAR BLOCKADE REVERSAL
     Dosage: 2 VIALS (400 MG), ONCE
     Dates: start: 20160121, end: 20160121
  2. SUGAMMADEX SODIUM [Suspect]
     Active Substance: SUGAMMADEX SODIUM
     Dosage: 2 ML, 200MG, ONCE
     Dates: start: 20160121, end: 20160121
  3. ROCURONIUM BROMIDE. [Suspect]
     Active Substance: ROCURONIUM BROMIDE
     Dosage: INFUSION AT 0.4 MG/KG/HR (40 MG PER HOUR) WITH BOLUS OF 10 MG PER HOUT (SINCE PATIENT BREATHING UP)
     Route: 042

REACTIONS (7)
  - Oxygen saturation decreased [Recovered/Resolved]
  - Dyspnoea [Recovered/Resolved]
  - Aphonia [Recovered/Resolved]
  - Hypotonia [Recovered/Resolved]
  - Cough [Recovered/Resolved]
  - Hypertension [Recovered/Resolved]
  - Tachycardia [Recovered/Resolved]

NARRATIVE: CASE EVENT DATE: 20160121
